FAERS Safety Report 8894678 (Version 3)
Quarter: 2012Q4

REPORT INFORMATION
  Report Type: 
  Country: DE (occurrence: DE)
  Receive Date: 20121108
  Receipt Date: 20121122
  Transmission Date: 20130627
  Serious: Yes (Death, Hospitalization)
  Sender: FDA-Public Use
  Company Number: DE-AMGEN-DEUCT2012069697

PATIENT
  Age: 66 Year
  Sex: Male
  Weight: 85 kg

DRUGS (4)
  1. ENBREL [Suspect]
     Indication: PRODUCT USED FOR UNKNOWN INDICATION
     Dosage: 50 mg, qwk
     Route: 058
     Dates: start: 201111, end: 201207
  2. METHOTREXATE [Concomitant]
     Indication: POLYARTHRITIS
     Dosage: 15 mg, weekly
     Route: 058
     Dates: start: 199705, end: 201207
  3. PREDNISONE [Concomitant]
     Indication: POLYARTHRITIS
     Dosage: 5 mg, 1x/day
     Route: 048
     Dates: start: 199702, end: 201207
  4. ALENDRONATE [Concomitant]
     Indication: OSTEOPOROSIS
     Dosage: 70 mg, weekly
     Dates: start: 200410, end: 201207

REACTIONS (3)
  - Multi-organ failure [Fatal]
  - Septic shock [Fatal]
  - Abscess [Unknown]
